FAERS Safety Report 8204753-6 (Version None)
Quarter: 2012Q1

REPORT INFORMATION
  Report Type: 
  Country: None (occurrence: None)
  Receive Date: 20120309
  Receipt Date: 20120227
  Transmission Date: 20120608
  Serious: Yes (Hospitalization)
  Sender: FDA-Public Use
  Company Number: 2012MA002356

PATIENT
  Age: 81 Year
  Sex: Female

DRUGS (8)
  1. CITALOPRAM HYDROBROMIDE [Concomitant]
  2. CALCIUM [Concomitant]
  3. MIRTAZAPINE [Concomitant]
  4. ACYCLOVIR [Suspect]
     Indication: HERPES ZOSTER
     Dosage: 800 MG,5XQD
  5. LANSOPRAZOLE [Concomitant]
  6. GABAPENTIN [Suspect]
     Indication: PAIN
  7. ALENDRONIC ACID [Concomitant]
  8. IMODIUM [Concomitant]

REACTIONS (5)
  - EPISTAXIS [None]
  - GENERAL PHYSICAL HEALTH DETERIORATION [None]
  - HALLUCINATION [None]
  - NIGHTMARE [None]
  - CEREBROVASCULAR ACCIDENT [None]
